FAERS Safety Report 4683288-1 (Version None)
Quarter: 2005Q2

REPORT INFORMATION
  Report Type: 
  Country: None (occurrence: None)
  Receive Date: 20050602
  Receipt Date: 20050222
  Transmission Date: 20051028
  Serious: No
  Sender: FDA-Public Use
  Company Number: 200510316BWH

PATIENT
  Sex: Male

DRUGS (7)
  1. LEVITRA [Suspect]
     Indication: ERECTILE DYSFUNCTION
     Dosage: SEE IMAGE
     Route: 048
     Dates: start: 20040201
  2. LEVITRA [Suspect]
     Indication: ERECTILE DYSFUNCTION
     Dosage: SEE IMAGE
     Route: 048
     Dates: start: 20050201
  3. LIPITOR [Concomitant]
  4. AMBIEN [Concomitant]
  5. LORAZEPAM [Concomitant]
  6. ZANTAC [Concomitant]
  7. AVAPRO [Concomitant]

REACTIONS (2)
  - ERECTILE DYSFUNCTION [None]
  - NO ADVERSE DRUG EFFECT [None]
